FAERS Safety Report 13662494 (Version 1)
Quarter: 2017Q2

REPORT INFORMATION
  Report Type: Spontaneous
  Country: US (occurrence: US)
  Receive Date: 20170617
  Receipt Date: 20170617
  Transmission Date: 20170830
  Serious: No
  Sender: FDA-Public Use
  Company Number: US-TEVA-777128USA

PATIENT
  Age: 58 Year
  Sex: Male
  Weight: 77.18 kg

DRUGS (1)
  1. PROAIR HFA [Suspect]
     Active Substance: ALBUTEROL SULFATE
     Dosage: USING THREE TO FOUR PUFFS A DAY
     Dates: start: 2015

REACTIONS (1)
  - Amphetamines positive [Unknown]

NARRATIVE: CASE EVENT DATE: 20170531
